FAERS Safety Report 8509810-2 (Version None)
Quarter: 2012Q3

REPORT INFORMATION
  Report Type: 
  Country: None (occurrence: None)
  Receive Date: 20120703
  Receipt Date: 20120619
  Transmission Date: 20120928
  Serious: Yes (Other)
  Sender: FDA-Public Use
  Company Number: JP-2012-15498

PATIENT
  Age: 93 Year
  Sex: Female
  Weight: 52 kg

DRUGS (5)
  1. ALDACTONE [Concomitant]
  2. SAMSCA [Suspect]
     Indication: CARDIAC FAILURE CHRONIC
     Dosage: 7.5 MG MILLIGRAM(S), QD, ORAL
     Route: 048
     Dates: start: 20120125, end: 20120130
  3. FERRUM (FERROUS FUMARATE) [Concomitant]
  4. GASMODIN (MOSAPRIDE CITRATE) [Concomitant]
  5. TORSEMIDE [Concomitant]

REACTIONS (5)
  - BLOOD POTASSIUM INCREASED [None]
  - ASTHENIA [None]
  - HYPERNATRAEMIA [None]
  - BLOOD UREA INCREASED [None]
  - DEHYDRATION [None]
